FAERS Safety Report 8609618-3 (Version None)
Quarter: 2012Q3

REPORT INFORMATION
  Report Type: 
  Country: None (occurrence: None)
  Receive Date: 20120821
  Receipt Date: 20120815
  Transmission Date: 20120928
  Serious: Yes (Hospitalization)
  Sender: FDA-Public Use
  Company Number: US-MPIJNJ-2012-05725

PATIENT
  Age: 62 Year
  Sex: Female
  Weight: 88.39 kg

DRUGS (1)
  1. VELCADE [Suspect]
     Indication: MULTIPLE MYELOMA
     Dosage: 2.6 MG, CYCLIC
     Route: 042
     Dates: start: 20120604

REACTIONS (4)
  - ANAEMIA [None]
  - MELAENA [None]
  - TACHYCARDIA [None]
  - DIZZINESS [None]
